FAERS Safety Report 10060032 (Version 1)
Quarter: 2014Q2

REPORT INFORMATION
  Report Type: Spontaneous
  Country: US (occurrence: US)
  Receive Date: 20140404
  Receipt Date: 20140404
  Transmission Date: 20141212
  Serious: No
  Sender: FDA-Public Use
  Company Number: US-GLAXOSMITHKLINE-A1052634A

PATIENT
  Age: 49 Year
  Sex: Female

DRUGS (3)
  1. ALLI [Suspect]
     Indication: WEIGHT DECREASED
     Route: 048
     Dates: start: 20131104, end: 20131204
  2. METFORMIN [Concomitant]
  3. TAGAMET [Concomitant]

REACTIONS (4)
  - Diarrhoea [Recovered/Resolved]
  - Dehydration [Recovered/Resolved]
  - Drug interaction [Recovered/Resolved]
  - Drug administration error [Recovered/Resolved]
